FAERS Safety Report 6245321-5 (Version None)
Quarter: 2009Q2

REPORT INFORMATION
  Report Type: 
  Country: None (occurrence: None)
  Receive Date: 20090625
  Receipt Date: 20090617
  Transmission Date: 20091009
  Serious: Yes (Hospitalization)
  Sender: FDA-Public Use
  Company Number: IN-ABBOTT-09P-078-0580068-00

PATIENT
  Age: 25 Year
  Sex: Female

DRUGS (3)
  1. LEPTOS [Suspect]
     Indication: OBESITY
     Route: 048
     Dates: start: 20090616, end: 20090616
  2. ASTHALIN [Suspect]
     Indication: DRUG USE FOR UNKNOWN INDICATION
  3. DOXOPHYLLIN [Suspect]
     Indication: DRUG USE FOR UNKNOWN INDICATION

REACTIONS (4)
  - LOSS OF CONSCIOUSNESS [None]
  - OVERDOSE [None]
  - SOMNOLENCE [None]
  - TACHYCARDIA [None]
